FAERS Safety Report 5760704-5 (Version None)
Quarter: 2008Q2

REPORT INFORMATION
  Report Type: 
  Country: None (occurrence: None)
  Receive Date: 20080606
  Receipt Date: 20071212
  Transmission Date: 20081010
  Serious: No
  Sender: FDA-Public Use
  Company Number: US-BAYER-200716878NA

PATIENT
  Age: 25 Year
  Sex: Female

DRUGS (2)
  1. MIRENA [Suspect]
     Indication: CONTRACEPTION
     Route: 015
     Dates: start: 20071118
  2. ALBUTEROL [Concomitant]
     Indication: ASTHMA
     Route: 055

REACTIONS (4)
  - COITAL BLEEDING [None]
  - DYSPAREUNIA [None]
  - PROCEDURAL DIZZINESS [None]
  - PROCEDURAL PAIN [None]
